FAERS Safety Report 5974758-4 (Version None)
Quarter: 2008Q4

REPORT INFORMATION
  Report Type: 
  Country: None (occurrence: None)
  Receive Date: 20081201
  Receipt Date: 20081125
  Transmission Date: 20090506
  Serious: Yes (Hospitalization)
  Sender: FDA-Public Use
  Company Number: FR-PFIZER INC-2008100407

PATIENT
  Sex: Male

DRUGS (19)
  1. ZAVEDOS POWDER, STERILE [Suspect]
     Route: 042
     Dates: start: 20080909, end: 20080917
  2. TRISENOX [Suspect]
     Route: 042
     Dates: start: 20080909, end: 20080919
  3. GRANOCYTE [Suspect]
     Route: 042
     Dates: start: 20080922
  4. ZOPHREN [Suspect]
     Route: 042
     Dates: start: 20080909
  5. ROCEPHIN [Suspect]
     Route: 042
     Dates: start: 20080909
  6. OFLOXACIN [Suspect]
     Route: 042
     Dates: start: 20080909
  7. PLAVIX [Concomitant]
  8. AMLOD [Concomitant]
  9. NEBIVOLOL [Concomitant]
  10. OMEPRAZOLE [Concomitant]
  11. ZOLPIDEM TARTRATE [Concomitant]
  12. PRIMPERAN TAB [Concomitant]
  13. ACUPAN [Concomitant]
  14. LOVENOX [Concomitant]
  15. METHYLPREDNISOLONE 16MG TAB [Concomitant]
  16. BRICANYL [Concomitant]
     Route: 055
  17. INIPOMP [Concomitant]
  18. ALL OTHER THERAPEUTIC PRODUCTS [Concomitant]
  19. PREDNISOLONE [Concomitant]

REACTIONS (2)
  - INTERSTITIAL LUNG DISEASE [None]
  - PERICARDIAL EFFUSION [None]
